FAERS Safety Report 18584000 (Version 1)
Quarter: 2020Q4

REPORT INFORMATION
  Report Type: Spontaneous
  Country: US (occurrence: US)
  Receive Date: 20201207
  Receipt Date: 20201207
  Transmission Date: 20210114
  Serious: Yes (Other)
  Sender: FDA-Public Use
  Company Number: US-LUPIN PHARMACEUTICALS INC.-2020-09847

PATIENT
  Age: 58 Year
  Sex: Female

DRUGS (5)
  1. ACETAMINOFEN [Concomitant]
     Active Substance: ACETAMINOPHEN
     Indication: PYREXIA
     Dosage: UNK
     Route: 065
  2. ISOPROTERENOL HCL [Concomitant]
     Active Substance: ISOPROTERENOL HYDROCHLORIDE
     Indication: BRUGADA SYNDROME
     Dosage: 2 MILLIGRAM
     Route: 065
  3. SALSALATE. [Concomitant]
     Active Substance: SALSALATE
     Indication: PYREXIA
     Dosage: UNK
     Route: 065
  4. ISOPROTERENOL HCL [Concomitant]
     Active Substance: ISOPROTERENOL HYDROCHLORIDE
     Dosage: 1 MG/MIN
  5. HYDROXYCHLOROQUINE [Suspect]
     Active Substance: HYDROXYCHLOROQUINE
     Indication: COVID-19
     Dosage: UNK
     Route: 065

REACTIONS (1)
  - Off label use [Unknown]
